FAERS Safety Report 9527097 (Version 1)
Quarter: 2013Q3

REPORT INFORMATION
  Report Type: Spontaneous
  Country: CL (occurrence: CL)
  Receive Date: 20130916
  Receipt Date: 20130916
  Transmission Date: 20140515
  Serious: Yes (Other)
  Sender: FDA-Public Use
  Company Number: CL-009507513-1309CHL005846

PATIENT
  Age: 8 Year
  Sex: Female

DRUGS (3)
  1. SINGULAIR [Suspect]
     Indication: ASTHMA
     Route: 048
  2. NEOCLARITINE [Suspect]
     Indication: FOOD ALLERGY
     Dosage: UNK
     Route: 048
  3. NEOCLARITINE [Suspect]
     Indication: ALLERGIC RESPIRATORY SYMPTOM

REACTIONS (1)
  - Anaphylactic shock [Unknown]
